FAERS Safety Report 9011935 (Version 2)
Quarter: 2013Q2

REPORT INFORMATION
  Report Type: Spontaneous
  Country: GB (occurrence: GB)
  Receive Date: 20130107
  Receipt Date: 20130516
  Transmission Date: 20140414
  Serious: Yes (Congenital Anomaly, Other)
  Sender: FDA-Public Use
  Company Number: GB-ROCHE-1175143

PATIENT
  Age: 26 Year
  Sex: Female

DRUGS (5)
  1. ISOTRETINOIN [Suspect]
     Indication: ACNE
     Route: 048
     Dates: start: 20121024, end: 20121118
  2. MICRONOR [Interacting]
     Indication: CONTRACEPTION
     Route: 065
  3. CERAZETTE [Concomitant]
     Indication: CONTRACEPTION
  4. DIANETTE [Concomitant]
     Indication: CONTRACEPTION
  5. FLUOXETINE [Concomitant]
     Indication: DEPRESSION

REACTIONS (2)
  - Drug interaction [Unknown]
  - Pregnancy on oral contraceptive [Unknown]
